FAERS Safety Report 9350581 (Version 1)
Quarter: 2013Q2

REPORT INFORMATION
  Report Type: Spontaneous
  Country: US (occurrence: US)
  Receive Date: 20130617
  Receipt Date: 20130617
  Transmission Date: 20140414
  Serious: No
  Sender: FDA-Public Use
  Company Number: US-009507513-1306USA003931

PATIENT
  Sex: 0

DRUGS (2)
  1. JANUVIA [Suspect]
     Dosage: 1 TABLET, UNK
     Route: 048
     Dates: start: 201212
  2. METFORMIN [Suspect]

REACTIONS (2)
  - Therapeutic response unexpected [Unknown]
  - Blood glucose increased [Unknown]
